FAERS Safety Report 15051119 (Version 1)
Quarter: 2018Q3

REPORT INFORMATION
  Report Type: Report from Study
  Country: MX (occurrence: MX)
  Receive Date: 20180622
  Receipt Date: 20180622
  Transmission Date: 20181010
  Serious: Yes (Hospitalization)
  Sender: FDA-Public Use
  Company Number: MX-BAYER-2018-114249

PATIENT
  Age: 62 Year
  Sex: Male

DRUGS (6)
  1. MEROPENEM. [Suspect]
     Active Substance: MEROPENEM
  2. PIPERACILLIN AND TAZOBACTAM [Suspect]
     Active Substance: PIPERACILLIN SODIUM\TAZOBACTAM SODIUM
  3. MOXIFLOXACIN. [Suspect]
     Active Substance: MOXIFLOXACIN
  4. CARBAPEN [Suspect]
     Active Substance: CARBENICILLIN DISODIUM
  5. VANCOMYCIN [Suspect]
     Active Substance: VANCOMYCIN
  6. IMIPENEM [Suspect]
     Active Substance: IMIPENEM

REACTIONS (1)
  - Clostridium difficile infection [None]
